FAERS Safety Report 23955152 (Version 2)
Quarter: 2024Q3

REPORT INFORMATION
  Report Type: Report from Study
  Country: US (occurrence: US)
  Receive Date: 20240610
  Receipt Date: 20240723
  Transmission Date: 20241016
  Serious: Yes (Hospitalization, Other)
  Sender: ACADIA PHARMACEUTICALS
  Company Number: US-ACADIA PHARMACEUTICALS INC.-ACA-2024-PIM-002462

PATIENT
  Age: 86 Year
  Sex: Male

DRUGS (49)
  1. NUPLAZID [Suspect]
     Active Substance: PIMAVANSERIN TARTRATE
     Indication: Parkinson^s disease psychosis
     Dosage: 34 MILLIGRAM, QD
     Route: 048
     Dates: start: 20240430
  2. NUPLAZID [Suspect]
     Active Substance: PIMAVANSERIN TARTRATE
     Indication: Parkinson^s disease
     Dosage: 34 MILLIGRAM, QD
     Route: 048
     Dates: start: 202406
  3. ALBUTEROL SULFATE [Concomitant]
     Active Substance: ALBUTEROL SULFATE
     Dosage: 90 MICROGRAM, TAKE 1 PUFF BY MOUTH EVERY 4 TO 6 HOURS AS NEEDED
     Dates: start: 20210524
  4. AMIODARONE HYDROCHLORIDE [Concomitant]
     Active Substance: AMIODARONE HYDROCHLORIDE
     Dosage: 400 MILLIGRAM, BID
     Route: 048
  5. AMIODARONE HYDROCHLORIDE [Concomitant]
     Active Substance: AMIODARONE HYDROCHLORIDE
     Dosage: 200MG, QD, TAKE 1 TABLET BY ORAL ROUTE EVERY DAY
     Route: 048
  6. AMOXICILLIN [Concomitant]
     Active Substance: AMOXICILLIN
     Dosage: TAKE 4 TABLETS 1 HOUR PRIOR TO PROCEDURE
     Dates: start: 20240528
  7. ARTIFICIAL TEARS (POLYVINYL ALCOHOL) [Concomitant]
     Active Substance: POLYVINYL ALCOHOL
     Dosage: 1.4% APPLY ONE DROP TO RIGHT EYE THREE TIMES PER DAY
  8. ASPIRIN [Concomitant]
     Active Substance: ASPIRIN
     Dosage: 325 MILLIGRAM, QD, TAKE 1 TABLET BY MOUTH DAILY
     Dates: start: 20240709
  9. BENADRYL [Concomitant]
     Active Substance: DIPHENHYDRAMINE HYDROCHLORIDE
     Dosage: 25 MILLIGRAM, TAKE 1 CAPSULE BY ORAL ROUTE AT BEDTIME WITH MELATONIN
     Route: 048
     Dates: start: 20240430
  10. CARBIDOPA\LEVODOPA [Concomitant]
     Active Substance: CARBIDOPA\LEVODOPA
     Dosage: 50MG -200 MG, TAKE 1 TABLET BY MOUTH THREE TIMES A DAY
     Dates: start: 20240412
  11. COSOPT PF [Concomitant]
     Active Substance: DORZOLAMIDE HYDROCHLORIDE\TIMOLOL MALEATE
     Dosage: 2%-0.5%, APPLY ONE DROP TO BOTH EYES TWICE PER DAY
     Dates: start: 20240603
  12. ELIQUIS [Concomitant]
     Active Substance: APIXABAN
     Dosage: 5 MILLIGRAM, BID, TABLE 1 TABLET BY ORAL ROUTE 2 TIMES EVERY DAY
     Route: 048
  13. FISH OIL\OMEGA-3 FATTY ACIDS [Concomitant]
     Active Substance: FISH OIL\OMEGA-3 FATTY ACIDS
     Dosage: 1000 MILLIGRAM, BID, TAKE 1 CAPSULE BY MOUTH TWICE PER DAY
     Route: 048
     Dates: start: 20180917
  14. FLOMAX [Concomitant]
     Active Substance: TAMSULOSIN HYDROCHLORIDE
     Dosage: 0.4 MILLIGRAM, TAKE ONE CAPSULE BY MOUTH DAILY 1/2 HOUR FOLLOWING THE SAME MEAL EACH DAY
     Dates: start: 20240618
  15. GABAPENTIN [Concomitant]
     Active Substance: GABAPENTIN
     Dosage: 300 MILLIGRAM, BID, TAKE 1 CAPSULE BY ORAL ROUTE TWICE DAILY
     Route: 048
     Dates: start: 20240709
  16. GABAPENTIN [Concomitant]
     Active Substance: GABAPENTIN
     Dosage: 100 MILLIGRAM, TAKE 2 CAPSULES BY MOUTH AT NOON
     Route: 048
     Dates: start: 20240709
  17. GABAPENTIN [Concomitant]
     Active Substance: GABAPENTIN
     Dosage: 200 MILLIGRAM AT NOON AND IN TEH EVENING
  18. HUMALOG KWIKPEN [Concomitant]
     Active Substance: INSULIN LISPRO
     Dosage: 100 UNIT/ML, INJECT 10 UNITS AT BREAKFAST, LUNCH AND DINNER IN ADDITION TO SLIDING SCALE MAX 56 UNIT
     Dates: start: 20240412
  19. HYDRALAZINE HCL [Concomitant]
     Active Substance: HYDRALAZINE HYDROCHLORIDE
     Dosage: 100 MILLIGRAM, BID, TAKE 1 TABLET BY MOUTH TWICE A DAY
     Route: 048
     Dates: start: 20240214
  20. HYDROCHLOROTHIAZIDE [Concomitant]
     Active Substance: HYDROCHLOROTHIAZIDE
     Dosage: 12.5 MILLIGRAM, QD, TAKE 1 CAPSULE BY MOUTH EVERY DAY
     Route: 048
     Dates: start: 20240227
  21. IBUPROFEN [Concomitant]
     Active Substance: IBUPROFEN
     Dosage: 200 MILLIGRAM, TAKE ONE TABLET BY MOUTH EVERY FOUR TO SIX HOURS AS NEEDED
     Route: 048
  22. ISOSORBIDE MONONITRATE [Concomitant]
     Active Substance: ISOSORBIDE MONONITRATE
     Dosage: 60 MILLIGRAM, QD, TAKE ONE TABLET BY MOUTH EVERY DAY IN THE MORNING
     Route: 048
     Dates: start: 20240528
  23. KLONOPIN [Concomitant]
     Active Substance: CLONAZEPAM
     Dosage: 0.5 MILLIGRAM, ONE TABLET Q HS
     Dates: start: 20210723
  24. KLOR-CON M10 [Concomitant]
     Active Substance: POTASSIUM CHLORIDE
     Dosage: 10 MEQ, TAKE ONE TABLET BY MOUTH THREE TINES PER DAY
     Dates: start: 20210302
  25. LANTUS SOLOSTAR [Concomitant]
     Active Substance: INSULIN GLARGINE
     Indication: Diabetes mellitus
     Dosage: 10 UNIT/ML (3ML), INJECT 26 UNITS SUBCUTANEOUS DAILY (115 DAY SUPPLY)
     Route: 058
     Dates: start: 20240506
  26. LYSINE [Concomitant]
     Active Substance: LYSINE
     Dosage: 500 MILLIGRAM, OTC FOLLOW INSTRUCTIONS ON PACKAGING
  27. MELATONIN [Concomitant]
     Active Substance: MELATONIN
     Dosage: 5 MILLIGRAM, 1 TABLET BY ORAL ROUTE AT BEDTIME
     Route: 048
  28. METOPROLOL TARTRATE [Concomitant]
     Active Substance: METOPROLOL TARTRATE
     Dosage: 50 MILLIGRAM, BID, TAKE 1 TABLET BY ORAL ROUTE 2 TIMES EVERY DAY WITH MEALS
     Route: 048
     Dates: start: 20240709
  29. VITAMINS NOS [Concomitant]
     Active Substance: VITAMINS
     Dosage: TAKE ONE TABLET BY MOUTH DAILY
     Dates: start: 20001012
  30. NITROGLYCERIN [Concomitant]
     Active Substance: NITROGLYCERIN
     Dosage: 0.4MG/HOUR, APPLY 1 PATCH IN THE MORNING, REMOVE AT NIGHT
     Dates: start: 20240412
  31. NORVASC [Concomitant]
     Active Substance: AMLODIPINE BESYLATE
     Dosage: 10 MILLIGRAM, TAKE 1/2 TABLET BY MOUTH EVERY DAY IN THE MORNING
     Route: 048
     Dates: start: 20240709
  32. DEXTROSE [Concomitant]
     Active Substance: DEXTROSE\DEXTROSE MONOHYDRATE
     Dosage: USE TO TEST BLOOD SUGARS 3 TIMES DAILY
     Dates: start: 20240412
  33. PANTOPRAZOLE SODIUM [Concomitant]
     Active Substance: PANTOPRAZOLE SODIUM
     Dosage: 40 MILLIGRAM, TAKE 1 TABLET BY MOUTH EVERY OTHER DAY
     Route: 048
     Dates: start: 20240506
  34. SIMVASTATIN [Concomitant]
     Active Substance: SIMVASTATIN
     Indication: Hyperlipidaemia
     Dosage: 40 MILLIGRAM, TAKE 1/2 TABLET BY MOUTH EVERY DAY IN THE EVENING
     Route: 048
     Dates: start: 20240709
  35. STOOL SOFTENER (DOCUSATE) [Concomitant]
     Active Substance: DOCUSATE
     Dosage: 100 MILLIGRAM, TAKE ONE CAPSULE BY MOUTH DAILY
  36. TYLENOL EXTRA STRENGTH [Concomitant]
     Active Substance: ACETAMINOPHEN
     Dosage: 500 MILLIGRAM
  37. VYZULTA [Concomitant]
     Active Substance: LATANOPROSTENE BUNOD
     Dosage: 0.0245 APPLY ONE DROP TO RIGHT EYE EVERY NIGHT AT BEDTIME
  38. OMEPRAZOLE [Concomitant]
     Active Substance: OMEPRAZOLE
     Dosage: 40 MILLIGRAM, QD
  39. POTASSIUM [Concomitant]
     Active Substance: POTASSIUM
     Dosage: 10 MEQ ONCE A DAY
  40. AMIODARONE [Concomitant]
     Active Substance: AMIODARONE
     Dosage: 400 MILLIGRAM, BID FOR 2 DAYS TO COMPLETE A 5 DAY LOADING DOSE FOLLOWED BY 200 MG DAILY GOING FORWAR
  41. MIRALAX [Concomitant]
     Active Substance: POLYETHYLENE GLYCOL 3350
     Dosage: 17 GRAM ONCE A DAY P.R..N
  42. LOSARTAN [Concomitant]
     Active Substance: LOSARTAN
     Indication: Hypertension
     Dosage: 25 MILLIGRAM, DAILY
  43. LISINOPRIL [Concomitant]
     Active Substance: LISINOPRIL
     Dosage: 40 MILLIGRAM, QD
  44. ADENOSINE [Concomitant]
     Active Substance: ADENOSINE
     Indication: Atrial flutter
  45. ZOLOFT [Concomitant]
     Active Substance: SERTRALINE HYDROCHLORIDE
     Dosage: 100 MILLIGRAM, TAKE 1 TABLET BY MOUTH EVERY DAY
     Dates: start: 20240618
  46. SERTRALINE [Concomitant]
     Active Substance: SERTRALINE HYDROCHLORIDE
     Indication: Depression
  47. SERTRALINE [Concomitant]
     Active Substance: SERTRALINE HYDROCHLORIDE
     Indication: Anxiety
  48. IMDUR [Concomitant]
     Active Substance: ISOSORBIDE MONONITRATE
     Indication: Hypertension
     Dosage: 60 MILLIGRAM, QD
  49. ROCEPHIN [Concomitant]
     Active Substance: CEFTRIAXONE SODIUM
     Indication: Urinary tract infection

REACTIONS (4)
  - Angioedema [Recovered/Resolved]
  - Urinary tract infection [Recovered/Resolved]
  - Blood pressure increased [Recovered/Resolved]
  - Hypersensitivity [Recovered/Resolved]

NARRATIVE: CASE EVENT DATE: 20240506
